FAERS Safety Report 18399855 (Version 1)
Quarter: 2020Q4

REPORT INFORMATION
  Report Type: Spontaneous
  Country: US (occurrence: US)
  Receive Date: 20201019
  Receipt Date: 20201019
  Transmission Date: 20210114
  Serious: No
  Sender: FDA-Public Use
  Company Number: US-ALLERGAN-2029449US

PATIENT
  Sex: Male

DRUGS (4)
  1. VRAYLAR [Suspect]
     Active Substance: CARIPRAZINE
     Dosage: 3 MG
  2. VYVANSE [Concomitant]
     Active Substance: LISDEXAMFETAMINE DIMESYLATE
  3. LITHIUM. [Concomitant]
     Active Substance: LITHIUM
  4. VRAYLAR [Suspect]
     Active Substance: CARIPRAZINE
     Indication: MANIA
     Dosage: 1.5 MG

REACTIONS (2)
  - Insomnia [Unknown]
  - Drug ineffective [Unknown]
